FAERS Safety Report 8387783-3 (Version None)
Quarter: 2012Q2

REPORT INFORMATION
  Report Type: 
  Country: None (occurrence: None)
  Receive Date: 20120525
  Receipt Date: 20120518
  Transmission Date: 20120825
  Serious: Yes (Hospitalization, Other)
  Sender: FDA-Public Use
  Company Number: GB-VIIV HEALTHCARE LIMITED-B0799380A

PATIENT
  Age: 38 Year
  Sex: Female

DRUGS (5)
  1. ABACAVIR SULFATE/LAMIVUDINE [Suspect]
     Indication: HIV INFECTION
     Dosage: 1TAB PER DAY
     Route: 048
     Dates: start: 20091001, end: 20120428
  2. IRON SUPPLEMENTS [Concomitant]
     Indication: ANAEMIA
  3. NEVIRAPINE [Suspect]
     Indication: HIV INFECTION
     Dosage: 400MG PER DAY
     Route: 048
     Dates: start: 20111115, end: 20120428
  4. FOLIC ACID [Concomitant]
     Indication: PREGNANCY
  5. CALCEOS [Concomitant]
     Indication: VITAMIN D DEFICIENCY

REACTIONS (2)
  - ANAEMIA HAEMOLYTIC AUTOIMMUNE [None]
  - MATERNAL EXPOSURE DURING PREGNANCY [None]
